FAERS Safety Report 8204432-5 (Version None)
Quarter: 2012Q1

REPORT INFORMATION
  Report Type: 
  Country: None (occurrence: None)
  Receive Date: 20120313
  Receipt Date: 20120216
  Transmission Date: 20120608
  Serious: No
  Sender: FDA-Public Use
  Company Number: US-BAYER-2012-017905

PATIENT
  Sex: Female

DRUGS (3)
  1. ASPIRIN [Suspect]
     Indication: DYSMENORRHOEA
  2. SODIUM BICARBONATE [Suspect]
     Indication: DYSMENORRHOEA
     Route: 048
  3. ALEVE (CAPLET) [Suspect]
     Indication: DYSMENORRHOEA
     Route: 048

REACTIONS (1)
  - DYSMENORRHOEA [None]
